FAERS Safety Report 4851676-6 (Version None)
Quarter: 2005Q4

REPORT INFORMATION
  Report Type: 
  Country: None (occurrence: None)
  Receive Date: 20051209
  Receipt Date: 20051209
  Transmission Date: 20060501
  Serious: Yes (Hospitalization)
  Sender: FDA-Public Use
  Company Number: None

PATIENT
  Age: 71 Year
  Sex: Female
  Weight: 63 kg

DRUGS (1)
  1. XIGRIS [Suspect]
     Indication: SEPSIS
     Dosage: 1500 MCG/HR 10 ML/HR IV DRIP
     Route: 041
     Dates: start: 20051201, end: 20051203

REACTIONS (1)
  - GASTROINTESTINAL HAEMORRHAGE [None]
